FAERS Safety Report 15690832 (Version 1)
Quarter: 2018Q4

REPORT INFORMATION
  Report Type: Spontaneous
  Country: US (occurrence: US)
  Receive Date: 20181205
  Receipt Date: 20181205
  Transmission Date: 20190205
  Serious: No
  Sender: FDA-Public Use
  Company Number: US-SA-2018SA325672

PATIENT
  Age: 59 Year
  Sex: Female

DRUGS (1)
  1. APIDRA [Suspect]
     Active Substance: INSULIN GLULISINE
     Indication: TYPE 2 DIABETES MELLITUS
     Dosage: 4U AM, 3U NOON, 3U D

REACTIONS (3)
  - Inappropriate schedule of product administration [Unknown]
  - Product contamination with body fluid [Unknown]
  - Injection site bruising [Unknown]
